FAERS Safety Report 9663806 (Version 1)
Quarter: 2013Q4

REPORT INFORMATION
  Report Type: Spontaneous
  Country: US (occurrence: US)
  Receive Date: 20131101
  Receipt Date: 20131101
  Transmission Date: 20140711
  Serious: No
  Sender: FDA-Public Use
  Company Number: US-BAYER-2013-133453

PATIENT
  Sex: Male

DRUGS (1)
  1. MIDOL EXTENDED RELIEF CAPLET [Suspect]

REACTIONS (2)
  - Abdominal pain upper [None]
  - Abdominal pain [None]
